FAERS Safety Report 7810446-7 (Version None)
Quarter: 2011Q4

REPORT INFORMATION
  Report Type: 
  Country: None (occurrence: None)
  Receive Date: 20111012
  Receipt Date: 20111006
  Transmission Date: 20120403
  Serious: Yes (Hospitalization, Other)
  Sender: FDA-Public Use
  Company Number: US-MERCK-1108USA03089

PATIENT
  Age: 77 Year
  Sex: Male
  Weight: 70 kg

DRUGS (7)
  1. LOSARTAN POTASSIUM [Concomitant]
     Route: 065
  2. PLAVIX [Concomitant]
     Route: 048
  3. COZAAR [Suspect]
     Indication: HYPERTENSION
     Route: 048
     Dates: start: 20060501
  4. ASPIRIN [Concomitant]
     Route: 065
  5. OMEPRAZOLE [Concomitant]
     Route: 048
  6. GLUCOPHAGE [Concomitant]
     Route: 065
  7. TOPROL-XL [Concomitant]
     Route: 048

REACTIONS (2)
  - AORTIC STENOSIS [None]
  - DIARRHOEA [None]
